FAERS Safety Report 9192610 (Version 2)
Quarter: 2013Q2

REPORT INFORMATION
  Report Type: Spontaneous
  Country: US (occurrence: None)
  Receive Date: 20130325
  Receipt Date: 20130514
  Transmission Date: 20140414
  Serious: Yes (Other)
  Sender: FDA-Public Use
  Company Number: ACO_34621_2013

PATIENT
  Age: 52 Year
  Sex: Female

DRUGS (1)
  1. AMPYRA [Suspect]
     Indication: PRODUCT USED FOR UNKNOWN INDICATION
     Dates: start: 20120725, end: 201210

REACTIONS (12)
  - Cough [None]
  - Malaise [None]
  - Kidney infection [None]
  - Muscular weakness [None]
  - Activities of daily living impaired [None]
  - Gait disturbance [None]
  - Urinary tract infection [None]
  - Headache [None]
  - Inappropriate schedule of drug administration [None]
  - Crying [None]
  - Impaired driving ability [None]
  - Mobility decreased [None]
